FAERS Safety Report 12399248 (Version 1)
Quarter: 2016Q2

REPORT INFORMATION
  Report Type: Spontaneous
  Country: US (occurrence: US)
  Receive Date: 20160524
  Receipt Date: 20160524
  Transmission Date: 20160815
  Serious: No
  Sender: FDA-Public Use
  Company Number: US-MDT-ADR-2016-00469

PATIENT
  Age: 46 Year
  Sex: Male

DRUGS (13)
  1. SEROQUEL [Suspect]
     Active Substance: QUETIAPINE FUMARATE
  2. OXYCODONE [Suspect]
     Active Substance: OXYCODONE
  3. NEXIUM [Suspect]
     Active Substance: ESOMEPRAZOLE MAGNESIUM
  4. COMPOUNDED BACLOFEN [Suspect]
     Active Substance: BACLOFEN
     Dosage: 35.015
     Route: 037
  5. LEVAQUIN [Suspect]
     Active Substance: LEVOFLOXACIN
  6. LASIX [Suspect]
     Active Substance: FUROSEMIDE
  7. ATIVAN [Suspect]
     Active Substance: LORAZEPAM
  8. COMPOUNDED HYDROMORPHONE [Suspect]
     Active Substance: HYDROMORPHONE
     Dosage: 14.006
     Route: 037
  9. LIDODERM [Suspect]
     Active Substance: LIDOCAINE
  10. ZOCOR [Suspect]
     Active Substance: SIMVASTATIN
  11. TESSALON [Suspect]
     Active Substance: BENZONATATE
  12. EFFEXOR XR [Suspect]
     Active Substance: VENLAFAXINE HYDROCHLORIDE
  13. NAPROXEN. [Suspect]
     Active Substance: NAPROXEN

REACTIONS (2)
  - Incorrect drug administration rate [None]
  - Pain [Unknown]
